FAERS Safety Report 24871998 (Version 6)
Quarter: 2025Q2

REPORT INFORMATION
  Report Type: Report from Study
  Country: US (occurrence: US)
  Receive Date: 20250122
  Receipt Date: 20250428
  Transmission Date: 20250717
  Serious: Yes (Other)
  Sender: AMGEN
  Company Number: US-AMGEN-USASP2025010931

PATIENT
  Age: 53 Year
  Sex: Female

DRUGS (5)
  1. KRYSTEXXA [Suspect]
     Active Substance: PEGLOTICASE
     Indication: Gout
     Dosage: UNK Q2WK (FISRT INFUSION)
     Route: 040
     Dates: start: 20250115
  2. KRYSTEXXA [Suspect]
     Active Substance: PEGLOTICASE
     Dosage: UNK Q2WK  (SECOND INFUSION)
     Route: 040
     Dates: start: 20250129
  3. KRYSTEXXA [Suspect]
     Active Substance: PEGLOTICASE
     Dosage: UNK, Q2WK
     Route: 040
     Dates: start: 20250326
  4. CELLCEPT [Suspect]
     Active Substance: MYCOPHENOLATE MOFETIL
     Indication: Product used for unknown indication
     Dosage: 500 MILLIGRAM, BID
     Route: 065
  5. METHYLPREDNISOLONE [Suspect]
     Active Substance: METHYLPREDNISOLONE
     Indication: Product used for unknown indication
     Route: 065

REACTIONS (7)
  - Arthropathy [Unknown]
  - Chest pain [Recovering/Resolving]
  - Migraine [Not Recovered/Not Resolved]
  - Blood uric acid increased [Unknown]
  - Haemoglobin decreased [Unknown]
  - Hypoaesthesia [Unknown]
  - Gout [Recovered/Resolved]

NARRATIVE: CASE EVENT DATE: 20250101
